FAERS Safety Report 8845987 (Version 2)
Quarter: 2012Q4

REPORT INFORMATION
  Report Type: 
  Country: FR (occurrence: FR)
  Receive Date: 20121017
  Receipt Date: 20121024
  Transmission Date: 20130627
  Serious: Yes (Hospitalization)
  Sender: FDA-Public Use
  Company Number: FR-ROCHE-1145014

PATIENT
  Sex: Male

DRUGS (5)
  1. MIRCERA [Suspect]
     Indication: ANAEMIA
     Route: 058
     Dates: start: 20120927
  2. AMLODIPINE [Concomitant]
     Dosage: 1/2 dose daily
     Route: 065
  3. OMEPRAZOLE [Concomitant]
     Dosage: 1 dose daily
     Route: 065
  4. PREVISCAN [Concomitant]
     Dosage: (1/4-1/4-1/2)
     Route: 065
  5. AVODART [Concomitant]
     Dosage: 1 dose daily.
     Route: 065

REACTIONS (2)
  - Hepatitis cholestatic [Not Recovered/Not Resolved]
  - Rash generalised [Not Recovered/Not Resolved]
